FAERS Safety Report 7201283-5 (Version None)
Quarter: 2010Q4

REPORT INFORMATION
  Report Type: 
  Country: None (occurrence: None)
  Receive Date: 20101215
  Receipt Date: 20101201
  Transmission Date: 20110411
  Serious: Yes (Disabling, Other)
  Sender: FDA-Public Use
  Company Number: GER/UNK/10/0016817

PATIENT
  Age: 87 Year
  Sex: Female
  Weight: 46 kg

DRUGS (6)
  1. TIZANIDINE (TIZANIDINE) [Suspect]
     Indication: MUSCLE SPASMS
     Dosage: 2 MG, ORAL; 4 MG, 1 IN 1 D,ORAL
     Route: 048
     Dates: end: 20101119
  2. TIZANIDINE (TIZANIDINE) [Suspect]
     Indication: MUSCLE SPASMS
     Dosage: 2 MG, ORAL; 4 MG, 1 IN 1 D,ORAL
     Route: 048
     Dates: start: 20101102
  3. SIMVASTATIN [Concomitant]
  4. WARFARIN SODIUM [Concomitant]
  5. CLOPIDOGREL [Concomitant]
  6. OMEPRAZOLE [Concomitant]

REACTIONS (2)
  - HYPOTENSION [None]
  - UNRESPONSIVE TO STIMULI [None]
